FAERS Safety Report 10181922 (Version 1)
Quarter: 2014Q2

REPORT INFORMATION
  Report Type: Spontaneous
  Country: US (occurrence: US)
  Receive Date: 20140519
  Receipt Date: 20140519
  Transmission Date: 20141212
  Serious: No
  Sender: FDA-Public Use
  Company Number: US-009507513-1405USA007626

PATIENT
  Sex: Female

DRUGS (2)
  1. SINEMET [Suspect]
     Indication: SPINOCEREBELLAR ATAXIA
     Dosage: UNK
     Route: 048
  2. CARBIDOPA (+) LEVODOPA [Suspect]
     Indication: SPINOCEREBELLAR ATAXIA
     Dosage: UNK
     Route: 048

REACTIONS (3)
  - Feeling hot [Unknown]
  - Drug ineffective for unapproved indication [Unknown]
  - Off label use [Unknown]
